FAERS Safety Report 4302367-1 (Version None)
Quarter: 2004Q1

REPORT INFORMATION
  Report Type: 
  Country: None (occurrence: None)
  Receive Date: 20040220
  Receipt Date: 20040205
  Transmission Date: 20041129
  Serious: Yes (Other)
  Sender: FDA-Public Use
  Company Number: 2004-DE-00595GD

PATIENT
  Age: 46 Year
  Sex: Female

DRUGS (8)
  1. CYCLOPHOSPHAMIDE [Suspect]
     Indication: DIFFUSE LARGE B-CELL LYMPHOMA
     Dosage: 3 CYCLES OF CHOP
  2. CYCLOPHOSPHAMIDE [Suspect]
     Indication: LYMPHOPROLIFERATIVE DISORDER
     Dosage: 3 CYCLES OF CHOP
  3. PREDNISONE [Suspect]
     Indication: DIFFUSE LARGE B-CELL LYMPHOMA
     Dosage: 3 CYCLES OF CHOP
  4. PREDNISONE [Suspect]
     Indication: LYMPHOPROLIFERATIVE DISORDER
     Dosage: 3 CYCLES OF CHOP
  5. DOXORUBICIN HCL [Suspect]
     Indication: DIFFUSE LARGE B-CELL LYMPHOMA
     Dosage: 3 CYCLES OF CHOP
  6. DOXORUBICIN HCL [Suspect]
     Indication: LYMPHOPROLIFERATIVE DISORDER
     Dosage: 3 CYCLES OF CHOP
  7. ONCOVIN [Suspect]
     Indication: DIFFUSE LARGE B-CELL LYMPHOMA
     Dosage: 3 CYCLES OF CHOP
  8. ONCOVIN [Suspect]
     Indication: LYMPHOPROLIFERATIVE DISORDER
     Dosage: 3 CYCLES OF CHOP

REACTIONS (5)
  - BLOOD LACTATE DEHYDROGENASE INCREASED [None]
  - DIFFUSE LARGE B-CELL LYMPHOMA STAGE IV [None]
  - DISEASE RECURRENCE [None]
  - HAEMATOTOXICITY [None]
  - LYMPHOPROLIFERATIVE DISORDER [None]
